FAERS Safety Report 7988761 (Version 2)
Quarter: 2012Q4

REPORT INFORMATION
  Report Type: 
  Country: CA (occurrence: CA)
  Receive Date: 20110613
  Receipt Date: 20121106
  Transmission Date: 20130627
  Serious: Yes (Other)
  Sender: FDA-Public Use
  Company Number: PHHO2005CA15945

PATIENT
  Sex: Male

DRUGS (1)
  1. SANDOSTATIN LAR (PATIENT BASIS) [Suspect]
     Indication: CARCINOID TUMOUR
     Dosage: 30 mg, every 3 weeks
     Dates: start: 20010320

REACTIONS (9)
  - Hypertension [Unknown]
  - Heart rate increased [Unknown]
  - Flushing [Unknown]
  - Anxiety [Unknown]
  - Fibrosis [Unknown]
  - Bradycardia [Unknown]
  - Diarrhoea [Unknown]
  - Heart rate decreased [Unknown]
  - Injection site pain [Unknown]
